FAERS Safety Report 4277363-3 (Version None)
Quarter: 2004Q1

REPORT INFORMATION
  Report Type: 
  Country: None (occurrence: None)
  Receive Date: 20040122
  Receipt Date: 20040113
  Transmission Date: 20041129
  Serious: Yes (Hospitalization)
  Sender: FDA-Public Use
  Company Number: PHBS2004ES00845

PATIENT
  Age: 37 Year
  Sex: Female

DRUGS (1)
  1. ZELMAC [Suspect]
     Indication: IRRITABLE BOWEL SYNDROME

REACTIONS (8)
  - ABDOMINAL DISTENSION [None]
  - ABDOMINAL PAIN [None]
  - ANXIETY [None]
  - FAECALOMA [None]
  - FREQUENT BOWEL MOVEMENTS [None]
  - INFREQUENT BOWEL MOVEMENTS [None]
  - TACHYCARDIA [None]
  - TREMOR [None]
